FAERS Safety Report 8256027-5 (Version None)
Quarter: 2012Q2

REPORT INFORMATION
  Report Type: 
  Country: None (occurrence: None)
  Receive Date: 20120403
  Receipt Date: 20120327
  Transmission Date: 20120825
  Serious: Yes (Hospitalization)
  Sender: FDA-Public Use
  Company Number: JP-SANOFI-AVENTIS-2012SA018316

PATIENT
  Age: 73 Year
  Sex: Male
  Weight: 55 kg

DRUGS (14)
  1. FLUOROURACIL [Suspect]
     Route: 041
     Dates: start: 20120201, end: 20120229
  2. FLUOROURACIL [Suspect]
     Indication: COLON CANCER
     Route: 040
     Dates: start: 20120201, end: 20120229
  3. DEXAMETHASONE SODIUM PHOSPHATE [Concomitant]
     Indication: PROPHYLAXIS OF NAUSEA AND VOMITING
     Route: 041
     Dates: start: 20120201, end: 20120229
  4. SOLDEM 3A [Concomitant]
     Indication: FLUID REPLACEMENT
     Route: 041
     Dates: start: 20120305, end: 20120306
  5. LEUCOVORIN CALCIUM [Suspect]
     Indication: COLON CANCER
     Route: 041
     Dates: start: 20120201, end: 20120229
  6. KYTRIL [Concomitant]
     Indication: PREMEDICATION
     Route: 041
     Dates: start: 20120201, end: 20120229
  7. DEXAMETHASONE SODIUM PHOSPHATE [Concomitant]
     Route: 048
     Dates: start: 20120215, end: 20120217
  8. OXALIPLATIN [Suspect]
     Indication: COLON CANCER
     Route: 041
     Dates: start: 20120201, end: 20120229
  9. MUCOSTA [Concomitant]
     Indication: PROPHYLAXIS
     Route: 048
     Dates: start: 20120215, end: 20120217
  10. DEXAMETHASONE SODIUM PHOSPHATE [Concomitant]
     Indication: PREMEDICATION
     Route: 041
     Dates: start: 20120201, end: 20120229
  11. DEXAMETHASONE SODIUM PHOSPHATE [Concomitant]
     Route: 048
     Dates: start: 20120215, end: 20120217
  12. ALLOPURINOL [Concomitant]
     Indication: HYPERURICAEMIA
     Route: 048
  13. EMEND [Concomitant]
     Indication: PROPHYLAXIS OF NAUSEA AND VOMITING
     Dosage: DOSE: 125-80 MG
     Route: 048
     Dates: start: 20120229, end: 20120302
  14. LASIX [Concomitant]
     Indication: BLOOD CREATININE INCREASED
     Route: 041
     Dates: start: 20120229, end: 20120229

REACTIONS (5)
  - HEMIANOPIA [None]
  - DECREASED APPETITE [None]
  - CEREBRAL INFARCTION [None]
  - HEADACHE [None]
  - HYPERTENSION [None]
